FAERS Safety Report 6100760-8 (Version None)
Quarter: 2009Q1

REPORT INFORMATION
  Report Type: 
  Country: None (occurrence: None)
  Receive Date: 20090303
  Receipt Date: 20090223
  Transmission Date: 20090719
  Serious: Yes (Death, Other)
  Sender: FDA-Public Use
  Company Number: IT-ROXANE LABORATORIES, INC.-2009-RO-00184RO

PATIENT
  Age: 54 Year
  Sex: Male

DRUGS (14)
  1. PREDNISONE [Suspect]
     Indication: PROSTATE CANCER
  2. DEXAMETHASONE [Suspect]
     Dosage: 16MG
  3. MORPHINE [Suspect]
     Dosage: 120MG
     Route: 048
  4. THALIDOMIDE [Suspect]
     Indication: PALLIATIVE CARE
     Dosage: 100MG
  5. ANDROGEN BLOCKADE [Suspect]
     Indication: PROSTATE CANCER
  6. MITOXANTRONE [Suspect]
     Indication: PROSTATE CANCER
  7. ESTRAMUSTINE [Suspect]
     Indication: PROSTATE CANCER
  8. PACLITAXEL [Suspect]
     Indication: PROSTATE CANCER
  9. CARBOPLATIN [Suspect]
     Indication: PROSTATE CANCER
  10. ETOPOSIDE [Suspect]
     Indication: PROSTATE CANCER
  11. ZOLEDRONIC ACID [Suspect]
  12. EPOGEN [Suspect]
  13. SALICYLATES [Suspect]
     Indication: CORONARY ARTERY DISEASE
  14. BETA BLOCKERS [Suspect]
     Indication: CORONARY ARTERY DISEASE

REACTIONS (9)
  - DEATH [None]
  - DISSEMINATED INTRAVASCULAR COAGULATION [None]
  - DRUG INEFFECTIVE [None]
  - METASTASES TO BONE [None]
  - METASTASES TO CENTRAL NERVOUS SYSTEM [None]
  - METASTASES TO LIVER [None]
  - NERVOUS SYSTEM DISORDER [None]
  - PERFORMANCE STATUS DECREASED [None]
  - RENAL IMPAIRMENT [None]
